FAERS Safety Report 6137985-1 (Version None)
Quarter: 2009Q1

REPORT INFORMATION
  Report Type: 
  Country: None (occurrence: None)
  Receive Date: 20090331
  Receipt Date: 20090320
  Transmission Date: 20090719
  Serious: Yes (Hospitalization)
  Sender: FDA-Public Use
  Company Number: GR-ROCHE-623360

PATIENT
  Age: 64 Year
  Sex: Female

DRUGS (2)
  1. XENICAL [Suspect]
     Indication: OBESITY
     Dosage: DOSE: 1-2 HARD CAPS OF ORLISTAT
     Route: 048
     Dates: start: 20070101, end: 20071201
  2. TRIATEC [Concomitant]
     Indication: HYPERTENSION
     Route: 048

REACTIONS (2)
  - DIARRHOEA [None]
  - PULMONARY EMBOLISM [None]
